FAERS Safety Report 15373970 (Version 3)
Quarter: 2018Q4

REPORT INFORMATION
  Report Type: Report from Study
  Country: None (occurrence: US)
  Receive Date: 20180912
  Receipt Date: 20181204
  Transmission Date: 20190204
  Serious: Yes (Hospitalization, Other)
  Sender: FDA-Public Use
  Company Number: US-ABBVIE-17K-163-2191611-00

PATIENT
  Sex: Female

DRUGS (10)
  1. AMOX/K CLAV [Concomitant]
     Active Substance: AMOXICILLIN\CLAVULANATE POTASSIUM
     Indication: PRODUCT USED FOR UNKNOWN INDICATION
  2. CLONAZEPAM. [Concomitant]
     Active Substance: CLONAZEPAM
     Indication: PRODUCT USED FOR UNKNOWN INDICATION
  3. HUMIRA [Suspect]
     Active Substance: ADALIMUMAB
     Indication: RHEUMATOID ARTHRITIS
     Route: 058
  4. PREDNISONE. [Concomitant]
     Active Substance: PREDNISONE
     Indication: PRODUCT USED FOR UNKNOWN INDICATION
  5. CYCLOBENZAPRINE. [Concomitant]
     Active Substance: CYCLOBENZAPRINE
     Indication: PRODUCT USED FOR UNKNOWN INDICATION
  6. HYDROCODONE BITARTRATE AND ACETAMINOPHEN [Concomitant]
     Active Substance: ACETAMINOPHEN\HYDROCODONE BITARTRATE
     Indication: PRODUCT USED FOR UNKNOWN INDICATION
     Dosage: 10-325 MILLIGRAM
  7. ZOLPIDEM [Concomitant]
     Active Substance: ZOLPIDEM\ZOLPIDEM TARTRATE
     Indication: PRODUCT USED FOR UNKNOWN INDICATION
  8. BUPROPION HYDROCHLORIDE XL [Concomitant]
     Active Substance: BUPROPION HYDROCHLORIDE
     Indication: PRODUCT USED FOR UNKNOWN INDICATION
  9. ESCITALOPRAM [Concomitant]
     Active Substance: ESCITALOPRAM OXALATE
     Indication: PRODUCT USED FOR UNKNOWN INDICATION
  10. ZIPRASIDONE. [Concomitant]
     Active Substance: ZIPRASIDONE
     Indication: PRODUCT USED FOR UNKNOWN INDICATION

REACTIONS (30)
  - Joint dislocation [Unknown]
  - Limb asymmetry [Unknown]
  - Arthritis [Unknown]
  - Bipolar disorder [Unknown]
  - Pain in extremity [Unknown]
  - Skin discolouration [Unknown]
  - Oesophageal injury [Unknown]
  - Dizziness [Unknown]
  - Hypoacusis [Recovered/Resolved]
  - Melanocytic naevus [Recovered/Resolved]
  - Peripheral swelling [Unknown]
  - Joint stiffness [Unknown]
  - Foot fracture [Recovered/Resolved]
  - Chest injury [Unknown]
  - Limb injury [Unknown]
  - Lower limb fracture [Unknown]
  - Fall [Recovered/Resolved]
  - Cerumen impaction [Unknown]
  - Bone loss [Unknown]
  - Joint swelling [Unknown]
  - Papule [Unknown]
  - Injection site pain [Unknown]
  - Rash macular [Unknown]
  - Musculoskeletal chest pain [Recovered/Resolved]
  - Hypersensitivity [Unknown]
  - Joint range of motion decreased [Unknown]
  - Spinal pain [Unknown]
  - Device damage [Unknown]
  - Fall [Unknown]
  - Osteoporosis [Unknown]

NARRATIVE: CASE EVENT DATE: 2017
